FAERS Safety Report 9472919 (Version 1)
Quarter: 2013Q3

REPORT INFORMATION
  Report Type: Spontaneous
  Country: US (occurrence: US)
  Receive Date: 20130823
  Receipt Date: 20130823
  Transmission Date: 20140515
  Serious: No
  Sender: FDA-Public Use
  Company Number: US-BRISTOL-MYERS SQUIBB COMPANY-17230731

PATIENT
  Age: 28 Year
  Sex: Male
  Weight: 83.9 kg

DRUGS (4)
  1. SPRYCEL (CML) TABS 50 MG [Suspect]
     Indication: CHRONIC MYELOID LEUKAEMIA
     Route: 048
     Dates: start: 20121103
  2. MULTIVITAMIN [Concomitant]
  3. NAPROXEN [Concomitant]
  4. OMEGA-3 [Concomitant]

REACTIONS (5)
  - Blood testosterone decreased [Not Recovered/Not Resolved]
  - Burning sensation [Not Recovered/Not Resolved]
  - Decreased appetite [Not Recovered/Not Resolved]
  - Nausea [Not Recovered/Not Resolved]
  - Abdominal discomfort [Not Recovered/Not Resolved]
